FAERS Safety Report 8938002 (Version 1)
Quarter: 2012Q4

REPORT INFORMATION
  Report Type: 
  Country: US (occurrence: US)
  Receive Date: 20121203
  Receipt Date: 20121203
  Transmission Date: 20130627
  Serious: Yes (Other)
  Sender: FDA-Public Use
  Company Number: US-ELI_LILLY_AND_COMPANY-US201211008135

PATIENT
  Sex: Female

DRUGS (2)
  1. HUMALOG LISPRO [Suspect]
     Indication: DIABETES MELLITUS
     Dosage: 10 u, prn
  2. LEVEMIR [Concomitant]

REACTIONS (5)
  - Blood glucose increased [Unknown]
  - Blood pressure increased [Unknown]
  - Medication error [Unknown]
  - Feeling abnormal [Unknown]
  - Fatigue [Unknown]
